FAERS Safety Report 6125873-6 (Version None)
Quarter: 2009Q1

REPORT INFORMATION
  Report Type: 
  Country: None (occurrence: None)
  Receive Date: 20090320
  Receipt Date: 20090313
  Transmission Date: 20090719
  Serious: Yes (Death)
  Sender: FDA-Public Use
  Company Number: JP-ASTRAZENECA-2009SE01181

PATIENT
  Age: 61 Year
  Sex: Female

DRUGS (1)
  1. BLOPRESS [Suspect]
     Route: 048
     Dates: start: 20070101, end: 20070501

REACTIONS (2)
  - PANCYTOPENIA [None]
  - PNEUMONIA [None]
